FAERS Safety Report 4720523-5 (Version None)
Quarter: 2005Q3

REPORT INFORMATION
  Report Type: 
  Country: None (occurrence: None)
  Receive Date: 20050721
  Receipt Date: 20050629
  Transmission Date: 20060218
  Serious: No
  Sender: FDA-Public Use
  Company Number: US-BRISTOL-MYERS SQUIBB COMPANY-13019872

PATIENT
  Age: 55 Year
  Sex: Female
  Weight: 122 kg

DRUGS (3)
  1. GLUCOVANCE [Suspect]
     Indication: DIABETES MELLITUS
     Route: 048
     Dates: start: 19980101
  2. HYZAAR [Concomitant]
  3. HUMULIN INSULIN [Concomitant]

REACTIONS (1)
  - RENAL DISORDER [None]
